FAERS Safety Report 19413005 (Version 1)
Quarter: 2021Q2

REPORT INFORMATION
  Report Type: Spontaneous
  Country: PH (occurrence: PH)
  Receive Date: 20210614
  Receipt Date: 20210614
  Transmission Date: 20210717
  Serious: Yes (Death, Other)
  Sender: FDA-Public Use
  Company Number: PH-ASTELLAS-2021US021683

PATIENT
  Age: 84 Year
  Sex: Male

DRUGS (1)
  1. XTANDI [Suspect]
     Active Substance: ENZALUTAMIDE
     Indication: HORMONE-REFRACTORY PROSTATE CANCER
     Route: 065
     Dates: start: 20201010, end: 20210420

REACTIONS (5)
  - Malignant neoplasm progression [Fatal]
  - Diabetes mellitus [Fatal]
  - Septic shock [Fatal]
  - Hypertensive heart disease [Fatal]
  - Pneumonia [Fatal]
